FAERS Safety Report 11002005 (Version 2)
Quarter: 2015Q2

REPORT INFORMATION
  Report Type: Spontaneous
  Country: US (occurrence: US)
  Receive Date: 20150408
  Receipt Date: 20150408
  Transmission Date: 20150821
  Serious: No
  Sender: FDA-Public Use
  Company Number: US-ASTELLAS-2015US003175

PATIENT
  Age: 47 Year
  Sex: Female
  Weight: 147 kg

DRUGS (6)
  1. ZOLOFT [Concomitant]
     Active Substance: SERTRALINE HYDROCHLORIDE
     Indication: ANXIETY
     Dosage: UNK UNK, UNKNOWN FREQ.
     Route: 065
  2. ASPIRIN. [Concomitant]
     Active Substance: ASPIRIN
     Indication: CARDIAC DISORDER
     Dosage: UNK UNK, UNKNOWN FREQ.
     Route: 065
  3. MICROGESTIN [Concomitant]
     Active Substance: ETHINYL ESTRADIOL\NORETHINDRONE ACETATE
     Indication: CONTRACEPTION
     Dosage: UNK UNK, UNKNOWN FREQ.
     Route: 065
  4. MYRBETRIQ [Suspect]
     Active Substance: MIRABEGRON
     Indication: PRODUCT USED FOR UNKNOWN INDICATION
     Route: 048
     Dates: start: 201501
  5. ALPRAZOLAM. [Concomitant]
     Active Substance: ALPRAZOLAM
     Indication: ANXIETY
     Dosage: UNK UNK, UNKNOWN FREQ.
     Route: 065
  6. MYRBETRIQ [Suspect]
     Active Substance: MIRABEGRON
     Indication: PRODUCT USED FOR UNKNOWN INDICATION
     Route: 048
     Dates: start: 201207, end: 201501

REACTIONS (1)
  - Intentional product misuse [Unknown]

NARRATIVE: CASE EVENT DATE: 201501
